FAERS Safety Report 17756389 (Version 1)
Quarter: 2020Q2

REPORT INFORMATION
  Report Type: Spontaneous
  Country: FR (occurrence: FR)
  Receive Date: 20200507
  Receipt Date: 20200507
  Transmission Date: 20200714
  Serious: Yes (Life-Threatening)
  Sender: FDA-Public Use
  Company Number: FR-CADILA HEALTHCARE LIMITED-FR-ZYDUS-021724

PATIENT

DRUGS (5)
  1. LYRICA [Suspect]
     Active Substance: PREGABALIN
     Indication: INTENTIONAL OVERDOSE
     Dosage: 6 GRAM
     Route: 048
     Dates: start: 20171007, end: 20171007
  2. BROMAZEPAM [Suspect]
     Active Substance: BROMAZEPAM
     Indication: INTENTIONAL OVERDOSE
     Dosage: 6 MILLIGRAM,(INTERVAL :1 DAYS)
     Route: 048
     Dates: start: 20171007, end: 20171007
  3. LYRICA [Suspect]
     Active Substance: PREGABALIN
     Indication: PRODUCT USED FOR UNKNOWN INDICATION
     Dosage: 6 GRAM,(1)
     Route: 048
     Dates: start: 20171007, end: 20171007
  4. LYRICA [Suspect]
     Active Substance: PREGABALIN
     Indication: INTENTIONAL OVERDOSE
     Dosage: 2.1 GRAM
     Route: 048
     Dates: start: 20171007, end: 20171007
  5. TRAMADOL. [Suspect]
     Active Substance: TRAMADOL
     Indication: INTENTIONAL OVERDOSE
     Route: 048
     Dates: start: 20171007, end: 20171007

REACTIONS (4)
  - Coma [Recovered/Resolved]
  - Cardiogenic shock [Recovered/Resolved]
  - Intentional overdose [Recovered/Resolved with Sequelae]
  - Electrocardiogram QT prolonged [Recovered/Resolved]

NARRATIVE: CASE EVENT DATE: 20171007
